FAERS Safety Report 9269796 (Version 2)
Quarter: 2013Q2

REPORT INFORMATION
  Report Type: Spontaneous
  Country: US (occurrence: US)
  Receive Date: 20130503
  Receipt Date: 20130506
  Transmission Date: 20140414
  Serious: Yes (Hospitalization)
  Sender: FDA-Public Use
  Company Number: US-BAYER-2013-052049

PATIENT
  Age: 79 Year
  Sex: Male
  Weight: 95.24 kg

DRUGS (5)
  1. ALEVE TABLET [Suspect]
     Indication: ARTHRALGIA
     Dosage: 2 DF, UNK
     Route: 048
     Dates: end: 20130423
  2. ALEVE TABLET [Suspect]
     Indication: ARTHRALGIA
     Dosage: 2 DF, TID
     Route: 048
     Dates: start: 20130422
  3. BAYER ASPIRIN REGIMEN ADULT LOW STRENGTH [Suspect]
     Route: 048
  4. LISINOPRIL [Concomitant]
  5. PLAVIX [Concomitant]

REACTIONS (5)
  - Haematochezia [Recovered/Resolved]
  - Rectal haemorrhage [Recovered/Resolved]
  - Incorrect dose administered [Recovered/Resolved]
  - Nausea [None]
  - Nausea [Not Recovered/Not Resolved]
